FAERS Safety Report 8167201-0 (Version None)
Quarter: 2012Q1

REPORT INFORMATION
  Report Type: 
  Country: None (occurrence: None)
  Receive Date: 20120227
  Receipt Date: 20120220
  Transmission Date: 20120608
  Serious: Yes (Other)
  Sender: FDA-Public Use
  Company Number: US-BAYER-2012-017302

PATIENT
  Age: 40 Year
  Sex: Female
  Weight: 73 kg

DRUGS (1)
  1. BAYER AM EXTRA STRENGTH [Suspect]
     Indication: TOOTHACHE
     Dosage: UNK, Q4HR
     Dates: start: 20120219, end: 20120219

REACTIONS (1)
  - TINNITUS [None]
